FAERS Safety Report 17097077 (Version 1)
Quarter: 2019Q4

REPORT INFORMATION
  Report Type: Spontaneous
  Country: US (occurrence: US)
  Receive Date: 20191129
  Receipt Date: 20191129
  Transmission Date: 20200122
  Serious: Yes (Hospitalization)
  Sender: FDA-Public Use
  Company Number: None

PATIENT
  Age: 65 Year
  Sex: Female
  Weight: 108 kg

DRUGS (4)
  1. ROSUVASTATIN 5 MG DAILY [Concomitant]
  2. WARFARIN [Suspect]
     Active Substance: WARFARIN
     Dosage: ?          OTHER FREQUENCY:3 TIMES A WEEK;?
     Route: 048
  3. WARFARIN [Suspect]
     Active Substance: WARFARIN
     Dosage: ?          OTHER FREQUENCY:MTTHFRI;?
     Route: 048
  4. CLOPIDOGREL 75 MG DAILY [Concomitant]

REACTIONS (2)
  - International normalised ratio increased [None]
  - Lower gastrointestinal haemorrhage [None]

NARRATIVE: CASE EVENT DATE: 20191116
